FAERS Safety Report 16419807 (Version 2)
Quarter: 2020Q1

REPORT INFORMATION
  Report Type: Spontaneous
  Country: CA (occurrence: CA)
  Receive Date: 20190612
  Receipt Date: 20200206
  Transmission Date: 20200409
  Serious: Yes (Hospitalization, Disabling)
  Sender: FDA-Public Use
  Company Number: CA-PFIZER INC-2019249056

PATIENT
  Sex: Female

DRUGS (1)
  1. VENLAFAXINE HCL [Suspect]
     Active Substance: VENLAFAXINE HYDROCHLORIDE
     Dosage: 300 MG, 1X/DAY
     Route: 065

REACTIONS (6)
  - Grunting [Unknown]
  - Exposure during pregnancy [Unknown]
  - General physical health deterioration [Unknown]
  - Hypotonia neonatal [Unknown]
  - Poor feeding infant [Unknown]
  - Somnolence neonatal [Unknown]
